FAERS Safety Report 7023489-0 (Version None)
Quarter: 2010Q3

REPORT INFORMATION
  Report Type: 
  Country: None (occurrence: None)
  Receive Date: 20100929
  Receipt Date: 20100929
  Transmission Date: 20110219
  Serious: Yes (Other)
  Sender: FDA-Public Use
  Company Number: None

PATIENT
  Age: 38 Year
  Sex: Male
  Weight: 115.6672 kg

DRUGS (6)
  1. GAMMAGARD LIQUID [Suspect]
     Indication: MULTIPLE SCLEROSIS
     Dosage: 60 GM (600MLS) INTRAVENOUSLY VIA PERIPHERAL ACCESS OVER 6 HRS EVERY 4 WEEKS
     Route: 042
  2. DIPHENHYDRAMINE [Concomitant]
  3. ACETAMINOPHEN [Concomitant]
  4. DEXTROSE 5% WATER [Concomitant]
  5. NORMAL SALINE [Concomitant]
  6. HEPARIN [Concomitant]

REACTIONS (3)
  - PRODUCT QUALITY ISSUE [None]
  - RASH [None]
  - URTICARIA [None]
